FAERS Safety Report 6106039-2 (Version None)
Quarter: 2009Q1

REPORT INFORMATION
  Report Type: 
  Country: None (occurrence: None)
  Receive Date: 20090306
  Receipt Date: 20090302
  Transmission Date: 20090719
  Serious: Yes (Death)
  Sender: FDA-Public Use
  Company Number: ES-GENENTECH-220824

PATIENT
  Sex: Male
  Weight: 54 kg

DRUGS (5)
  1. BEVACIZUMAB [Suspect]
     Indication: COLON CANCER
     Dosage: 405 MG, Q2W
     Route: 042
     Dates: start: 20051103
  2. OXALIPLATIN [Suspect]
     Indication: COLON CANCER
     Dosage: 85 MG/M2, Q2W
     Route: 042
     Dates: start: 20051103
  3. FOLINIC ACID [Suspect]
     Indication: COLON CANCER
     Dosage: 200 MG/M2, UNK
     Route: 042
     Dates: start: 20051103
  4. FLUOROURACIL [Suspect]
     Indication: COLON CANCER
     Dosage: 628 MG, UNK
     Route: 042
     Dates: start: 20051103
  5. FLUOROURACIL [Suspect]
     Dosage: 940 MG, UNK
     Route: 041
     Dates: start: 20051103

REACTIONS (1)
  - SUDDEN DEATH [None]
